FAERS Safety Report 9669618 (Version 2)
Quarter: 2013Q4

REPORT INFORMATION
  Report Type: Spontaneous
  Country: MX (occurrence: MX)
  Receive Date: 20131105
  Receipt Date: 20131125
  Transmission Date: 20140711
  Serious: Yes (Other)
  Sender: FDA-Public Use
  Company Number: MX-ELI_LILLY_AND_COMPANY-MX201310008412

PATIENT
  Age: 18 Year
  Sex: Female

DRUGS (2)
  1. ZYPREXA [Suspect]
     Indication: PSYCHOTIC DISORDER
     Dosage: 5 MG, UNKNOWN
     Route: 065
     Dates: start: 201310, end: 20131111
  2. KEPRA [Concomitant]
     Indication: EPILEPSY
     Dosage: 1 DF, UNKNOWN
     Route: 065

REACTIONS (5)
  - Loss of consciousness [Unknown]
  - Psychotic disorder [Unknown]
  - Epilepsy [Unknown]
  - Anger [Unknown]
  - Exposure during pregnancy [Unknown]
